FAERS Safety Report 5531825-7 (Version None)
Quarter: 2007Q4

REPORT INFORMATION
  Report Type: 
  Country: None (occurrence: None)
  Receive Date: 20071128
  Receipt Date: 20071128
  Transmission Date: 20080405
  Serious: Yes (Hospitalization)
  Sender: FDA-Public Use
  Company Number: None

PATIENT
  Age: 81 Year
  Sex: Male

DRUGS (1)
  1. ASPIRIN [Suspect]
     Dosage: 81MG  EVERY DAY  PO
     Route: 048
     Dates: start: 20051118, end: 20070725

REACTIONS (1)
  - GASTRIC HAEMORRHAGE [None]
